FAERS Safety Report 8557189-2 (Version None)
Quarter: 2012Q3

REPORT INFORMATION
  Report Type: 
  Country: None (occurrence: None)
  Receive Date: 20120801
  Receipt Date: 20120725
  Transmission Date: 20120928
  Serious: Yes (Other)
  Sender: FDA-Public Use
  Company Number: PHHY2012US064210

PATIENT
  Age: 20 Year
  Sex: Female

DRUGS (5)
  1. PROPRANOLOL [Concomitant]
     Dosage: 20 MG, BID
  2. PREDNISONE [Concomitant]
     Dosage: 40 MG, PER DAY
  3. PREDNISONE [Concomitant]
     Dosage: 60 MG, PER DAY
  4. CYCLOSPORINE [Suspect]
  5. PREDNISONE [Concomitant]
     Dosage: 20 MG, PER DAY

REACTIONS (3)
  - LEUKOCYTOSIS [None]
  - AUTOIMMUNE THROMBOCYTOPENIA [None]
  - ESCHERICHIA URINARY TRACT INFECTION [None]
